FAERS Safety Report 7861996-9 (Version None)
Quarter: 2011Q4

REPORT INFORMATION
  Report Type: 
  Country: None (occurrence: None)
  Receive Date: 20111027
  Receipt Date: 20101122
  Transmission Date: 20120403
  Serious: No
  Sender: FDA-Public Use
  Company Number: US-AMGEN-USASP2010006058

PATIENT
  Sex: Female
  Weight: 75.737 kg

DRUGS (6)
  1. ENBREL [Suspect]
     Indication: RHEUMATOID ARTHRITIS
     Dosage: 50 MG, QWK
     Route: 058
  2. METHOTREXATE [Concomitant]
     Dosage: 2.5 MG, UNK
  3. ZYRTEC [Concomitant]
     Dosage: 5 MG, UNK
     Route: 048
  4. PRILOSEC [Concomitant]
     Dosage: 10 MG, UNK
  5. PLAQUENIL [Concomitant]
     Dosage: 200 MG, UNK
     Route: 048
  6. FOLIC ACID [Concomitant]
     Dosage: 1 MG, UNK
     Route: 048

REACTIONS (1)
  - NASOPHARYNGITIS [None]
